FAERS Safety Report 24769780 (Version 1)
Quarter: 2024Q4

REPORT INFORMATION
  Report Type: Spontaneous
  Country: US (occurrence: US)
  Receive Date: 20241224
  Receipt Date: 20241224
  Transmission Date: 20250114
  Serious: No
  Sender: VIIV
  Company Number: US-VIIV HEALTHCARE-US2024157442

PATIENT
  Age: 30 Year
  Sex: Male

DRUGS (5)
  1. CABENUVA [Interacting]
     Active Substance: CABOTEGRAVIR\RILPIVIRINE
     Indication: HIV infection
     Dosage: UNK
     Dates: start: 20241212
  2. CABENUVA [Interacting]
     Active Substance: CABOTEGRAVIR\RILPIVIRINE
  3. CABENUVA [Interacting]
     Active Substance: CABOTEGRAVIR\RILPIVIRINE
  4. LENACAPAVIR [Interacting]
     Active Substance: LENACAPAVIR
     Indication: HIV infection
     Dosage: UNK
  5. IBALIZUMAB [Interacting]
     Active Substance: IBALIZUMAB
     Indication: HIV infection
     Dosage: UNK

REACTIONS (3)
  - Product use in unapproved therapeutic environment [Unknown]
  - Off label use [Unknown]
  - Labelled drug-drug interaction medication error [Unknown]
